FAERS Safety Report 12467597 (Version 1)
Quarter: 2016Q2

REPORT INFORMATION
  Report Type: Spontaneous
  Country: US (occurrence: US)
  Receive Date: 20160615
  Receipt Date: 20160615
  Transmission Date: 20160815
  Serious: No
  Sender: FDA-Public Use
  Company Number: US-WATSON-2015-20246

PATIENT
  Age: 72 Year
  Sex: Male

DRUGS (2)
  1. CIPROFLOXACIN HYDROCHLORIDE (WATSON LABORATORIES) [Suspect]
     Active Substance: CIPROFLOXACIN HYDROCHLORIDE
     Indication: DIVERTICULITIS
     Dosage: 250 MG, BID
     Route: 048
     Dates: start: 20150613, end: 20150617
  2. IMODIUM [Concomitant]
     Active Substance: LOPERAMIDE HYDROCHLORIDE
     Indication: DIARRHOEA
     Dosage: UNK, UNKNOWN
     Route: 065

REACTIONS (7)
  - Peripheral swelling [Unknown]
  - Blister [Unknown]
  - Blister rupture [Unknown]
  - Unevaluable event [Unknown]
  - Erythema [Unknown]
  - Swelling face [Unknown]
  - Diarrhoea [Not Recovered/Not Resolved]

NARRATIVE: CASE EVENT DATE: 20150617
